FAERS Safety Report 9861976 (Version 1)
Quarter: 2014Q1

REPORT INFORMATION
  Report Type: Spontaneous
  Country: FR (occurrence: FR)
  Receive Date: 20140203
  Receipt Date: 20140203
  Transmission Date: 20141002
  Serious: Yes (Hospitalization, Other)
  Sender: FDA-Public Use
  Company Number: FR-009507513-1401FRA011379

PATIENT
  Age: 64 Year
  Sex: Male

DRUGS (5)
  1. JANUMET [Suspect]
     Dosage: 1 DF, BID
     Route: 048
  2. TAHOR [Suspect]
     Dosage: 10 MG, QD
     Route: 048
  3. APROVEL [Suspect]
     Dosage: 150 MG, QD
     Route: 048
  4. GLICLAZIDE [Suspect]
     Dosage: 30 MG, QD
     Route: 048
  5. PARIET [Suspect]
     Dosage: 10 MG, QD
     Route: 048
     Dates: end: 20131120

REACTIONS (1)
  - Pancytopenia [Unknown]
